FAERS Safety Report 15481639 (Version 2)
Quarter: 2019Q1

REPORT INFORMATION
  Report Type: Spontaneous
  Country: DE (occurrence: DE)
  Receive Date: 20181010
  Receipt Date: 20190111
  Transmission Date: 20190417
  Serious: Yes (Hospitalization)
  Sender: FDA-Public Use
  Company Number: DE-TEVA-2018-DE-962211

PATIENT
  Age: 53 Year
  Sex: Female

DRUGS (18)
  1. COPAXONE [Suspect]
     Active Substance: GLATIRAMER ACETATE
     Indication: MULTIPLE SCLEROSIS
     Route: 058
     Dates: start: 20160815
  2. MARCUMAR [Concomitant]
     Active Substance: PHENPROCOUMON
     Indication: FACTOR V LEIDEN MUTATION
     Dates: start: 2010
  3. PANTOPRAZOL 1A PHARMA 20 MG [Concomitant]
     Dosage: 0-0-1-0
  4. KEPPRA 1000 MG FILMTABLETTEN [Concomitant]
     Indication: BRAIN STEM SYNDROME
     Dosage: 1250 MG IN THE MORNING AND IN THE EVENING
  5. DEKRISTOL 20000 IE WEICHKAPSELN [Concomitant]
     Dosage: ONE CAPSULE EACH SECOND WEEK
  6. RAMIPRIL 1A PHARMA 5 MG [Concomitant]
     Dates: end: 201802
  7. EFFLUMIDEX LIQUIFILM AUGENTROPFEN [Concomitant]
  8. MAGNESIUM VERLA N DRAGEES [Concomitant]
  9. NAPROXEN ACIS SCHMERZTABLETTEN [Concomitant]
  10. IBEROGAST [Concomitant]
     Active Substance: HERBALS
  11. PREDNISOLON 20 MG GALEN TABLETTEN [Concomitant]
     Dates: start: 201701
  12. ATORVASTATIN ACTAVIS 20 MG [Concomitant]
     Dosage: 0-0-1-0
  13. CLEXANE 40 MG 0.4 ML [Concomitant]
  14. DIAZEPAM. [Concomitant]
     Active Substance: DIAZEPAM
     Indication: SEIZURE
     Dosage: AT HIGH DOSAGE
  15. NOVOPULMON 200 MICROGRAM [Concomitant]
  16. KEPPRA 500 MG FILMTABLETTEN [Concomitant]
     Indication: BRAIN STEM SYNDROME
  17. MARCUMAR [Concomitant]
     Active Substance: PHENPROCOUMON
     Indication: VENOUS THROMBOSIS
     Dosage: ACCORDING TO PLAN (UNKNOWN)
     Dates: start: 2004, end: 2006
  18. NASONEX 140 [Concomitant]

REACTIONS (2)
  - Cholelithiasis [Recovered/Resolved]
  - Impaired healing [Recovered/Resolved]

NARRATIVE: CASE EVENT DATE: 201807
